FAERS Safety Report 7628751-6 (Version None)
Quarter: 2011Q3

REPORT INFORMATION
  Report Type: 
  Country: None (occurrence: None)
  Receive Date: 20110722
  Receipt Date: 20110711
  Transmission Date: 20111222
  Serious: Yes (Hospitalization)
  Sender: FDA-Public Use
  Company Number: US-BAYER-2011-043445

PATIENT
  Age: 44 Year
  Sex: Female
  Weight: 56.689 kg

DRUGS (5)
  1. ADDERALL 10 [Concomitant]
  2. YAZ [Suspect]
     Dosage: UNK
     Route: 048
     Dates: start: 20090605, end: 20100115
  3. MELOXICAM [Concomitant]
     Indication: RHEUMATOID ARTHRITIS
     Dosage: 7.5 MG, UNK
     Route: 048
  4. ANTIBIOTICS [Concomitant]
     Indication: PNEUMONIA
  5. IBUPROFEN [Concomitant]
     Indication: ARTHRITIS

REACTIONS (4)
  - INJURY [None]
  - CHOLELITHIASIS [None]
  - ABDOMINAL PAIN UPPER [None]
  - CHOLECYSTITIS CHRONIC [None]
